FAERS Safety Report 4375787-7 (Version None)
Quarter: 2004Q2

REPORT INFORMATION
  Report Type: 
  Country: None (occurrence: None)
  Receive Date: 20040609
  Receipt Date: 20040609
  Transmission Date: 20050107
  Serious: Yes (Hospitalization)
  Sender: FDA-Public Use
  Company Number: None

PATIENT
  Sex: Female

DRUGS (5)
  1. IMURAN [Suspect]
     Indication: PEMPHIGOID
     Dosage: 50 MG PO BID [2-3 WEEKS PRIOR TO HOSPITAL ADMISSION]
     Route: 048
  2. PREDNISONE [Concomitant]
  3. LIPITOR [Concomitant]
  4. TYLENOL [Concomitant]
  5. CALCIUM [Concomitant]

REACTIONS (10)
  - ABDOMINAL TENDERNESS [None]
  - CHEST PAIN [None]
  - DYSPNOEA EXERTIONAL [None]
  - ENDOCARDITIS [None]
  - FATIGUE [None]
  - MYOCARDIAL INFARCTION [None]
  - NAUSEA [None]
  - PANCREATITIS ACUTE [None]
  - PYREXIA [None]
  - VOMITING [None]
